FAERS Safety Report 4985780-9 (Version None)
Quarter: 2006Q2

REPORT INFORMATION
  Report Type: 
  Country: None (occurrence: None)
  Receive Date: 20060421
  Receipt Date: 20060410
  Transmission Date: 20061013
  Serious: Yes (Hospitalization)
  Sender: FDA-Public Use
  Company Number: 2006049806

PATIENT
  Age: 85 Year
  Sex: Male

DRUGS (5)
  1. FLUCONAZOLE [Suspect]
     Indication: ORAL CANDIDIASIS
     Dosage: 4 SPOONS (4 IN 1 D), ORAL
     Route: 048
     Dates: start: 20060225, end: 20060310
  2. FLUINDIONE (FLUINDIONE) [Suspect]
     Indication: ILL-DEFINED DISORDER
     Dosage: (20 MG), ORAL
     Route: 048
     Dates: start: 20041215, end: 20060312
  3. DL-LYSINE ACETYLSALICYLATE (LYSINE) [Concomitant]
  4. SIMVASTATIN [Concomitant]
  5. VERAPAMIL CHLORHYDRATE (VERAPAMIL) [Concomitant]

REACTIONS (4)
  - DRUG INTERACTION [None]
  - INTERNATIONAL NORMALISED RATIO INCREASED [None]
  - ORAL CANDIDIASIS [None]
  - PROTHROMBIN TIME SHORTENED [None]
